FAERS Safety Report 7585626-9 (Version None)
Quarter: 2011Q2

REPORT INFORMATION
  Report Type: 
  Country: None (occurrence: None)
  Receive Date: 20110628
  Receipt Date: 20110628
  Transmission Date: 20111010
  Serious: No
  Sender: FDA-Public Use
  Company Number: None

PATIENT
  Sex: Female

DRUGS (1)
  1. LATANOPROST [Suspect]
     Indication: GLAUCOMA
     Dosage: 1 DROP AT BEDTIME EYE
     Dates: start: 20110601, end: 20110607

REACTIONS (3)
  - INSTILLATION SITE PAIN [None]
  - INSTILLATION SITE ABNORMAL SENSATION [None]
  - PRODUCT SUBSTITUTION ISSUE [None]
